FAERS Safety Report 11103411 (Version 1)
Quarter: 2015Q2

REPORT INFORMATION
  Report Type: Spontaneous
  Country: FI (occurrence: FI)
  Receive Date: 20150511
  Receipt Date: 20150511
  Transmission Date: 20150821
  Serious: Yes (Other)
  Sender: FDA-Public Use
  Company Number: FI-WATSON-2015-09168

PATIENT
  Age: 67 Year
  Sex: Female

DRUGS (4)
  1. CANDESARTAN ACTAVIS [Concomitant]
     Indication: PRODUCT USED FOR UNKNOWN INDICATION
     Dosage: 16 MG, DAILY
     Route: 048
     Dates: start: 2012
  2. SIMVASTATIN ACTAVIS [Suspect]
     Active Substance: SIMVASTATIN
     Indication: HYPERCHOLESTEROLAEMIA
     Dosage: 40 MG, DAILY
     Route: 048
     Dates: start: 20150411, end: 20150414
  3. CANDESARTAN ACTAVIS [Concomitant]
     Indication: BLOOD PRESSURE
  4. TENOX                              /00393701/ [Concomitant]
     Indication: INSOMNIA
     Dosage: 20 MG, DAILY
     Route: 048
     Dates: start: 1995

REACTIONS (4)
  - Arthralgia [Recovered/Resolved]
  - Throat irritation [Recovered/Resolved]
  - Myalgia [Recovered/Resolved]
  - Hypoaesthesia [Recovered/Resolved]

NARRATIVE: CASE EVENT DATE: 20150413
